FAERS Safety Report 6344551-1 (Version None)
Quarter: 2009Q3

REPORT INFORMATION
  Report Type: 
  Country: None (occurrence: None)
  Receive Date: 20090908
  Receipt Date: 20090810
  Transmission Date: 20100115
  Serious: No
  Sender: FDA-Public Use
  Company Number: US-BAYER-200913337BCC

PATIENT
  Age: 81 Year
  Sex: Male
  Weight: 68 kg

DRUGS (6)
  1. ALEVE (CAPLET) [Suspect]
     Indication: ARTHRITIS
     Dosage: TOTAL DAILY DOSE: 440 MG  UNIT DOSE: 220 MG
     Route: 048
     Dates: start: 20080101, end: 20090810
  2. ALBUTEROL [Concomitant]
  3. IPRATROPIUM [Concomitant]
  4. KLONOPIN [Concomitant]
  5. TYLENOL (CAPLET) [Concomitant]
  6. CALTRATE [Concomitant]

REACTIONS (1)
  - RASH PAPULAR [None]
